FAERS Safety Report 20976306 (Version 6)
Quarter: 2022Q3

REPORT INFORMATION
  Report Type: Spontaneous
  Country: US (occurrence: US)
  Receive Date: 20220617
  Receipt Date: 20220915
  Transmission Date: 20221027
  Serious: Yes (Hospitalization, Other)
  Sender: FDA-Public Use
  Company Number: US-PFIZER INC-202200845383

PATIENT
  Age: 16 Year
  Sex: Male
  Weight: 136.07 kg

DRUGS (1)
  1. VIAGRA [Suspect]
     Active Substance: SILDENAFIL CITRATE
     Dosage: UNK, (THERE IS UP TO 100MG)

REACTIONS (7)
  - Drug dependence [Recovered/Resolved]
  - Deafness [Recovered/Resolved]
  - Blindness [Recovered/Resolved]
  - Blood pressure decreased [Not Recovered/Not Resolved]
  - Muscle spasms [Unknown]
  - Visual impairment [Unknown]
  - Somnolence [Unknown]

NARRATIVE: CASE EVENT DATE: 20010101
